FAERS Safety Report 6014643-5 (Version None)
Quarter: 2008Q4

REPORT INFORMATION
  Report Type: 
  Country: None (occurrence: None)
  Receive Date: 20081219
  Receipt Date: 20081008
  Transmission Date: 20090506
  Serious: No
  Sender: FDA-Public Use
  Company Number: A0750945A

PATIENT
  Age: 54 Year
  Sex: Male

DRUGS (3)
  1. AVODART [Suspect]
     Indication: BENIGN PROSTATIC HYPERPLASIA
     Dosage: 1CAP PER DAY
     Route: 048
     Dates: end: 20081003
  2. VITAMIN B [Concomitant]
  3. ASCORBIC ACID [Concomitant]

REACTIONS (1)
  - ARTHRALGIA [None]
